FAERS Safety Report 12990375 (Version 1)
Quarter: 2016Q4

REPORT INFORMATION
  Report Type: Spontaneous
  Country: RU (occurrence: RU)
  Receive Date: 20161201
  Receipt Date: 20161201
  Transmission Date: 20170207
  Serious: Yes (Other)
  Sender: FDA-Public Use
  Company Number: RU-TEVA-714754ISR

PATIENT
  Age: 18 Year
  Sex: Female

DRUGS (1)
  1. MODELL TREND [Suspect]
     Active Substance: DROSPIRENONE\ETHINYL ESTRADIOL

REACTIONS (2)
  - Haemorrhage [Recovered/Resolved]
  - Rash [Recovered/Resolved]
